FAERS Safety Report 9744662 (Version 1)
Quarter: 2013Q4

REPORT INFORMATION
  Report Type: Spontaneous
  Country: DK (occurrence: DK)
  Receive Date: 20131210
  Receipt Date: 20131210
  Transmission Date: 20140711
  Serious: Yes (Hospitalization)
  Sender: FDA-Public Use
  Company Number: PHHY2013DK141095

PATIENT
  Age: 79 Year
  Sex: Female

DRUGS (9)
  1. HJERDYL [Suspect]
     Indication: ATRIAL FIBRILLATION
     Dosage: 75 MG, QD
     Route: 048
     Dates: end: 20131126
  2. PERSANTINE [Suspect]
     Indication: ATRIAL FIBRILLATION
     Dosage: 200 MG, BID
     Route: 048
     Dates: end: 20131126
  3. CIPROFLOXACIN [Concomitant]
     Indication: URINARY TRACT INFECTION
     Dates: start: 20131117, end: 20131126
  4. LAMISIL [Concomitant]
     Indication: LOCALISED INFECTION
     Route: 003
     Dates: start: 20131115, end: 20131126
  5. LACTULOSE [Concomitant]
     Indication: CONSTIPATION
     Dosage: 667 MG/ML, UNK
     Route: 048
     Dates: start: 201202
  6. MANDOLGIN [Concomitant]
     Indication: PAIN
  7. PALEXIA DEPOT [Concomitant]
     Indication: PAIN
     Route: 048
  8. PANODIL [Concomitant]
     Indication: PAIN
  9. MOVICOL [Concomitant]
     Indication: CONSTIPATION
     Route: 048

REACTIONS (2)
  - Cerebral haemorrhage [Recovered/Resolved with Sequelae]
  - Confusional state [Unknown]
